FAERS Safety Report 6292651-7 (Version None)
Quarter: 2009Q3

REPORT INFORMATION
  Report Type: 
  Country: None (occurrence: None)
  Receive Date: 20090731
  Receipt Date: 20090721
  Transmission Date: 20100115
  Serious: Yes (Other)
  Sender: FDA-Public Use
  Company Number: GB-AMGEN-UK358004

PATIENT

DRUGS (2)
  1. MIMPARA [Suspect]
     Indication: RENAL FAILURE CHRONIC
     Route: 065
  2. TACROLIMUS [Suspect]
     Route: 065

REACTIONS (2)
  - DRUG LEVEL INCREASED [None]
  - JAUNDICE CHOLESTATIC [None]
